FAERS Safety Report 5733563-4 (Version None)
Quarter: 2008Q2

REPORT INFORMATION
  Report Type: 
  Country: None (occurrence: None)
  Receive Date: 20080509
  Receipt Date: 20080429
  Transmission Date: 20081010
  Serious: Yes (Other)
  Sender: FDA-Public Use
  Company Number: AR-JNJFOC-20071006973

PATIENT
  Sex: Female

DRUGS (1)
  1. IBUPIRAC [Suspect]
     Indication: DENTAL OPERATION
     Dosage: ONCE

REACTIONS (2)
  - CERVIX DYSTOCIA [None]
  - DRUG EXPOSURE DURING PREGNANCY [None]
